FAERS Safety Report 9662977 (Version 1)
Quarter: 2013Q4

REPORT INFORMATION
  Report Type: Spontaneous
  Country: US (occurrence: US)
  Receive Date: 20131031
  Receipt Date: 20131031
  Transmission Date: 20140711
  Serious: Yes (Other)
  Sender: FDA-Public Use
  Company Number: US-NAPPMUNDI-USA-2011-0076068

PATIENT
  Age: 33 Year
  Sex: Female

DRUGS (4)
  1. OXYCONTIN (NDA 22-272) [Suspect]
     Indication: BACK PAIN
  2. OXYCONTIN (NDA 22-272) [Suspect]
     Indication: ARTHRALGIA
  3. OXYCODONE HCL IMMEDIATE RELEASE (91-490) [Suspect]
     Indication: BACK PAIN
  4. OXYCODONE HCL IMMEDIATE RELEASE (91-490) [Suspect]
     Indication: ARTHRALGIA

REACTIONS (1)
  - Drug dependence [Unknown]
